FAERS Safety Report 20691997 (Version 1)
Quarter: 2022Q2

REPORT INFORMATION
  Report Type: Spontaneous
  Country: CN (occurrence: None)
  Receive Date: 20220408
  Receipt Date: 20220408
  Transmission Date: 20220721
  Serious: Yes (Other)
  Sender: FDA-Public Use
  Company Number: CN-ROCHE-3067124

PATIENT
  Age: 72 Year
  Sex: Male
  Weight: 70 kg

DRUGS (2)
  1. MABTHERA [Suspect]
     Active Substance: RITUXIMAB
     Indication: Encephalitis autoimmune
     Dosage: 0.9% NS 100ML ONCE PER DAY BY INTRAVENOUS DRIP.
     Route: 041
     Dates: start: 20220320, end: 20220320
  2. MABTHERA [Suspect]
     Active Substance: RITUXIMAB
     Dosage: 0.9% NS 500ML ONCE PER DAY BY INTRAVENOUS DRIP
     Route: 041
     Dates: start: 20220321, end: 20220321

REACTIONS (2)
  - Transaminases increased [Recovering/Resolving]
  - Off label use [Unknown]

NARRATIVE: CASE EVENT DATE: 20220323
